FAERS Safety Report 8969045 (Version 1)
Quarter: 2012Q4

REPORT INFORMATION
  Report Type: Report from Study
  Country: US (occurrence: US)
  Receive Date: 20121217
  Receipt Date: 20121217
  Transmission Date: 20130627
  Serious: Yes (Hospitalization, Other)
  Sender: FDA-Public Use
  Company Number: US-US-EMD SERONO, INC.-7181917

PATIENT
  Sex: Female

DRUGS (1)
  1. REBIF [Suspect]
     Indication: PRODUCT USED FOR UNKNOWN INDICATION
     Dates: start: 20120605, end: 201210

REACTIONS (9)
  - Metastases to lung [Not Recovered/Not Resolved]
  - Metastases to bone [Not Recovered/Not Resolved]
  - Trigeminal neuralgia [Unknown]
  - Gastric disorder [Unknown]
  - Abasia [Recovered/Resolved]
  - Benign neoplasm [Unknown]
  - Loss of consciousness [Unknown]
  - Central nervous system lesion [Unknown]
  - Contusion [Unknown]
